FAERS Safety Report 24172013 (Version 2)
Quarter: 2024Q3

REPORT INFORMATION
  Report Type: Spontaneous
  Country: BE (occurrence: BE)
  Receive Date: 20240805
  Receipt Date: 20240909
  Transmission Date: 20241016
  Serious: Yes (Other)
  Sender: AMGEN
  Company Number: BE-UCBSA-2024038038

PATIENT
  Age: 82 Year
  Sex: Female

DRUGS (1)
  1. EVENITY [Suspect]
     Active Substance: ROMOSOZUMAB-AQQG
     Indication: Osteoporosis postmenopausal
     Dosage: 210 MILLIGRAM, QMO (210 MILLIGRAM, MONTHLY (QM))
     Route: 058
     Dates: start: 202311

REACTIONS (4)
  - Injection site movement impairment [Recovering/Resolving]
  - Incorrect drug administration rate [Unknown]
  - Device issue [Unknown]
  - Injection site swelling [Recovering/Resolving]

NARRATIVE: CASE EVENT DATE: 20240708
